FAERS Safety Report 5676148-0 (Version None)
Quarter: 2008Q1

REPORT INFORMATION
  Report Type: 
  Country: None (occurrence: None)
  Receive Date: 20080321
  Receipt Date: 20080312
  Transmission Date: 20080703
  Serious: Yes (Other)
  Sender: FDA-Public Use
  Company Number: US-BAYER-200713506BWH

PATIENT
  Age: 79 Year
  Sex: Female
  Weight: 49 kg

DRUGS (5)
  1. NEXAVAR [Suspect]
     Indication: GALLBLADDER CANCER
     Dosage: TOTAL DAILY DOSE: 400 MG  UNIT DOSE: 200 MG
     Route: 048
     Dates: start: 20070905, end: 20070927
  2. MORPHINE [Concomitant]
  3. VITAMINS [Concomitant]
  4. STOOL SOFTENER [Concomitant]
  5. LACTULOSE [Concomitant]

REACTIONS (11)
  - BLISTER [None]
  - GAIT DISTURBANCE [None]
  - HYPERKERATOSIS [None]
  - ORAL PAIN [None]
  - PAIN [None]
  - PAIN IN EXTREMITY [None]
  - PALMAR-PLANTAR ERYTHRODYSAESTHESIA SYNDROME [None]
  - PARAESTHESIA [None]
  - TONGUE BLISTERING [None]
  - TONGUE ULCERATION [None]
  - WHITE BLOOD CELL COUNT DECREASED [None]
